FAERS Safety Report 8331411-X (Version None)
Quarter: 2012Q2

REPORT INFORMATION
  Report Type: 
  Country: None (occurrence: None)
  Receive Date: 20120502
  Receipt Date: 20120417
  Transmission Date: 20120825
  Serious: No
  Sender: FDA-Public Use
  Company Number: US-AMGEN-USASP2011043884

PATIENT
  Age: 31 Year
  Sex: Female
  Weight: 95.238 kg

DRUGS (5)
  1. METHADONE HCL [Concomitant]
     Dosage: UNK
     Route: 048
  2. ENBREL [Suspect]
     Indication: PSORIATIC ARTHROPATHY
  3. ENBREL [Suspect]
     Indication: PSORIASIS
     Dosage: 50 MG, QWK
     Route: 058
     Dates: start: 20110801, end: 20120301
  4. PROVIGIL [Concomitant]
     Route: 048
  5. B12                                /00056201/ [Concomitant]
     Route: 030

REACTIONS (5)
  - MIGRAINE [None]
  - NAUSEA [None]
  - HYPERSOMNIA [None]
  - HYPERHIDROSIS [None]
  - DECREASED APPETITE [None]
